FAERS Safety Report 20499687 (Version 2)
Quarter: 2022Q1

REPORT INFORMATION
  Report Type: Report from Study
  Country: DE (occurrence: None)
  Receive Date: 20220222
  Receipt Date: 20220321
  Transmission Date: 20220423
  Serious: Yes (Hospitalization)
  Sender: FDA-Public Use
  Company Number: DE-ROCHE-3024717

PATIENT
  Age: 49 Year
  Sex: Female
  Weight: 61 kg

DRUGS (18)
  1. ATEZOLIZUMAB [Suspect]
     Active Substance: ATEZOLIZUMAB
     Indication: Triple negative breast cancer
     Dosage: ON 06/JAN/2022, RECEIVED LAST DOSE OF ATEZOLIZUMAB BEFORE EVENT.
     Route: 041
     Dates: start: 20211112
  2. PACLITAXEL [Suspect]
     Active Substance: PACLITAXEL
     Indication: Triple negative breast cancer
     Dosage: DATE OF LAST DOSE PRIOR TO SAE: 06/JAN/2022, 139 MG
     Route: 042
     Dates: start: 20211126
  3. CARBOPLATIN [Suspect]
     Active Substance: CARBOPLATIN
     Indication: Triple negative breast cancer
     Dosage: AREA UNDER THE CURVE OF 2?DATE OF LAST DOSE PRIOR TO SAE: 06/JAN/2022, 220 MG
     Route: 042
     Dates: start: 20211126
  4. DEXAMETHASONE [Concomitant]
     Active Substance: DEXAMETHASONE
     Dates: start: 20211126, end: 20211126
  5. DEXAMETHASONE [Concomitant]
     Active Substance: DEXAMETHASONE
     Dates: start: 20211125
  6. DEXAMETHASONE [Concomitant]
     Active Substance: DEXAMETHASONE
     Dates: start: 20211202, end: 20211219
  7. CLEMASTINE [Concomitant]
     Active Substance: CLEMASTINE
     Dates: start: 20211125
  8. CLEMASTINE [Concomitant]
     Active Substance: CLEMASTINE
     Dates: start: 20211126, end: 20211126
  9. APREPITANT [Concomitant]
     Active Substance: APREPITANT
     Dates: start: 20211203
  10. APREPITANT [Concomitant]
     Active Substance: APREPITANT
     Dates: start: 20211202
  11. APREPITANT [Concomitant]
     Active Substance: APREPITANT
     Dates: start: 20211125, end: 20211125
  12. PANTOPRAZOLE [Concomitant]
     Active Substance: PANTOPRAZOLE
     Dates: start: 20211125
  13. GRANISETRONE [Concomitant]
     Dates: start: 20211125
  14. CHOLECALCIFEROL [Concomitant]
     Active Substance: CHOLECALCIFEROL
     Dates: start: 20211112
  15. METOCLOPRAMIDE [Concomitant]
     Active Substance: METOCLOPRAMIDE
     Dates: start: 20211026
  16. ONDANSETRON [Concomitant]
     Active Substance: ONDANSETRON
     Dates: start: 20211126
  17. FILGRASTIM [Concomitant]
     Active Substance: FILGRASTIM
     Dates: start: 20211209
  18. COMIRNATY [Concomitant]
     Active Substance: TOZINAMERAN
     Dates: start: 20211206, end: 20211206

REACTIONS (1)
  - Pyrexia [Recovered/Resolved]

NARRATIVE: CASE EVENT DATE: 20220107
